FAERS Safety Report 16461227 (Version 1)
Quarter: 2019Q2

REPORT INFORMATION
  Report Type: Spontaneous
  Country: US (occurrence: US)
  Receive Date: 20190621
  Receipt Date: 20190621
  Transmission Date: 20190711
  Serious: No
  Sender: FDA-Public Use
  Company Number: US-UNITED THERAPEUTICS-UNT-2019-008816

PATIENT
  Sex: Female

DRUGS (2)
  1. TYVASO [Suspect]
     Active Substance: TREPROSTINIL
     Dosage: 36 ?G, QID
     Dates: start: 201904
  2. TYVASO [Suspect]
     Active Substance: TREPROSTINIL
     Indication: PULMONARY ARTERIAL HYPERTENSION
     Dosage: 42 ?G, QID
     Dates: start: 20190424

REACTIONS (7)
  - Cough [Not Recovered/Not Resolved]
  - Product use issue [Unknown]
  - Wrong technique in device usage process [Unknown]
  - Oxygen saturation decreased [Unknown]
  - Throat irritation [Unknown]
  - Breath sounds abnormal [Unknown]
  - Headache [Recovered/Resolved]
